FAERS Safety Report 7584102-7 (Version None)
Quarter: 2011Q2

REPORT INFORMATION
  Report Type: 
  Country: None (occurrence: None)
  Receive Date: 20110630
  Receipt Date: 20110622
  Transmission Date: 20111010
  Serious: No
  Sender: FDA-Public Use
  Company Number: US-JNJFOC-20110610684

PATIENT
  Sex: Female
  Weight: 83.92 kg

DRUGS (5)
  1. INVEGA SUSTENNA [Suspect]
     Indication: SCHIZOAFFECTIVE DISORDER
     Route: 030
     Dates: start: 20110618
  2. VICODIN [Concomitant]
     Indication: PAIN
     Route: 065
  3. INVEGA SUSTENNA [Suspect]
     Indication: BIPOLAR DISORDER
     Route: 030
     Dates: start: 20110618
  4. ALBUTEROL SULFATE AUTOHALER [Concomitant]
     Route: 055
  5. PHENERGAN HCL [Concomitant]
     Indication: COUGH
     Route: 048

REACTIONS (5)
  - EXPIRED DRUG ADMINISTERED [None]
  - MANIA [None]
  - AGGRESSION [None]
  - PSYCHOMOTOR HYPERACTIVITY [None]
  - ANGER [None]
